FAERS Safety Report 23654918 (Version 1)
Quarter: 2024Q1

REPORT INFORMATION
  Report Type: Spontaneous
  Country: US (occurrence: None)
  Receive Date: 20240320
  Receipt Date: 20240320
  Transmission Date: 20240410
  Serious: Yes (Hospitalization)
  Sender: FDA-Public Use
  Company Number: None

PATIENT
  Age: 81 Year
  Sex: Female

DRUGS (5)
  1. OPSUMIT [Suspect]
     Active Substance: MACITENTAN
     Indication: Pulmonary arterial hypertension
     Dosage: FREQUENCY : DAILY;?
     Route: 048
     Dates: start: 201611
  2. UPTRAVI [Concomitant]
     Active Substance: SELEXIPAG
  3. NIFEDIPINE [Concomitant]
     Active Substance: NIFEDIPINE
  4. OPSUMIT [Concomitant]
     Active Substance: MACITENTAN
  5. ADEMPAS [Concomitant]
     Active Substance: RIOCIGUAT

REACTIONS (3)
  - Pneumonia [None]
  - Pulmonary oedema [None]
  - Renal disorder [None]

NARRATIVE: CASE EVENT DATE: 20240313
